FAERS Safety Report 23267276 (Version 1)
Quarter: 2023Q4

REPORT INFORMATION
  Report Type: Spontaneous
  Country: US (occurrence: None)
  Receive Date: 20231206
  Receipt Date: 20231206
  Transmission Date: 20240110
  Serious: Yes (Other)
  Sender: FDA-Public Use
  Company Number: US-ROCHE-3464938

PATIENT
  Age: 3 Year
  Sex: Male

DRUGS (1)
  1. TOCILIZUMAB [Suspect]
     Active Substance: TOCILIZUMAB
     Indication: Product used for unknown indication
     Route: 065

REACTIONS (13)
  - Autoinflammatory disease [Unknown]
  - Haemophagocytic lymphohistiocytosis [Unknown]
  - Inflammation [Unknown]
  - Viral infection [Unknown]
  - Pyrexia [Unknown]
  - Dehydration [Unknown]
  - Rash [Unknown]
  - Cytophagic histiocytic panniculitis [Unknown]
  - C-reactive protein increased [Unknown]
  - Fibrin D dimer increased [Unknown]
  - Platelet count decreased [Unknown]
  - Eosinophil count increased [Unknown]
  - Drug reaction with eosinophilia and systemic symptoms [Unknown]

NARRATIVE: CASE EVENT DATE: 20231018
